FAERS Safety Report 4409967-9 (Version None)
Quarter: 2004Q3

REPORT INFORMATION
  Report Type: 
  Country: None (occurrence: None)
  Receive Date: 20040723
  Receipt Date: 20040707
  Transmission Date: 20050211
  Serious: Yes (Hospitalization)
  Sender: FDA-Public Use
  Company Number: A0517352A

PATIENT
  Age: 43 Year
  Sex: Female
  Weight: 77.1569 kg

DRUGS (3)
  1. NICODERM CQ [Suspect]
     Indication: SMOKING CESSATION THERAPY
     Dosage: 14 MG/PER DAY/ TRANSDERMAL
     Route: 062
     Dates: start: 20040601
  2. CARDIOVASCULAR MEDICATION [Concomitant]
  3. BLOOD PRESSURE MEDICATION [Concomitant]

REACTIONS (7)
  - ASTHENIA [None]
  - CHEST PAIN [None]
  - CORONARY ARTERY OCCLUSION [None]
  - DIZZINESS [None]
  - HEART RATE INCREASED [None]
  - INCREASED APPETITE [None]
  - INSOMNIA [None]
